FAERS Safety Report 6207993-0 (Version None)
Quarter: 2009Q2

REPORT INFORMATION
  Report Type: 
  Country: None (occurrence: None)
  Receive Date: 20090529
  Receipt Date: 20090227
  Transmission Date: 20091009
  Serious: No
  Sender: FDA-Public Use
  Company Number: A0770930A

PATIENT
  Age: 50 Year
  Sex: Female

DRUGS (5)
  1. VENTOLIN [Suspect]
     Indication: ASTHMA
     Dosage: 1PUFF AS REQUIRED
     Route: 055
     Dates: start: 20090226, end: 20090226
  2. NEXIUM [Concomitant]
  3. SYNTHROID [Concomitant]
  4. ADVAIR HFA [Concomitant]
  5. BENADRYL [Concomitant]

REACTIONS (2)
  - FEELING JITTERY [None]
  - PHARYNGEAL OEDEMA [None]
